FAERS Safety Report 6127837-5 (Version None)
Quarter: 2009Q1

REPORT INFORMATION
  Report Type: 
  Country: None (occurrence: None)
  Receive Date: 20090320
  Receipt Date: 20090320
  Transmission Date: 20090719
  Serious: No
  Sender: FDA-Public Use
  Company Number: None

PATIENT
  Age: 55 Year
  Sex: Male
  Weight: 92.5338 kg

DRUGS (1)
  1. CREST PRO-HEALTH MOUTHWASH PROCTOR + GAMBLE CO [Suspect]

REACTIONS (4)
  - GINGIVAL PAIN [None]
  - PAIN IN JAW [None]
  - SENSITIVITY OF TEETH [None]
  - TOOTH DISCOLOURATION [None]
